FAERS Safety Report 15477765 (Version 2)
Quarter: 2018Q4

REPORT INFORMATION
  Report Type: Spontaneous
  Country: IT (occurrence: IT)
  Receive Date: 20181009
  Receipt Date: 20181016
  Transmission Date: 20190205
  Serious: Yes (Hospitalization, Other)
  Sender: FDA-Public Use
  Company Number: IT-HIKMA PHARMACEUTICALS USA INC.-IT-H14001-18-07724

PATIENT
  Age: 55 Year
  Sex: Male

DRUGS (2)
  1. VANCOMYCIN HIKMA [Suspect]
     Active Substance: VANCOMYCIN
     Indication: MULTIPLE INJURIES
     Route: 042
     Dates: start: 20180525, end: 20180608
  2. PIPERACILLIN AND TAZOBACTAM KABI [Suspect]
     Active Substance: PIPERACILLIN SODIUM\TAZOBACTAM SODIUM
     Indication: PRODUCT USED FOR UNKNOWN INDICATION
     Route: 042
     Dates: start: 20180525, end: 20180608

REACTIONS (2)
  - Leukopenia [Recovered/Resolved]
  - Neutropenia [Recovered/Resolved]

NARRATIVE: CASE EVENT DATE: 20180608
